FAERS Safety Report 6823325-9 (Version None)
Quarter: 2010Q3

REPORT INFORMATION
  Report Type: 
  Country: None (occurrence: None)
  Receive Date: 20100708
  Receipt Date: 20100628
  Transmission Date: 20110219
  Serious: Yes (Hospitalization)
  Sender: FDA-Public Use
  Company Number: US-JNJCH-2010015827

PATIENT
  Age: 69 Year
  Sex: Male

DRUGS (3)
  1. BENADRYL [Suspect]
     Indication: STOMATITIS
     Dosage: TEXT:UNKNOWN
     Route: 048
  2. MAALOX [Suspect]
     Indication: STOMATITIS
     Dosage: TEXT:UNKNOWN
     Route: 048
  3. LIDOCAINE [Suspect]
     Indication: STOMATITIS
     Dosage: TEXT:UNKNOWN
     Route: 048

REACTIONS (3)
  - CONSTIPATION [None]
  - HYPOAESTHESIA ORAL [None]
  - SOMNOLENCE [None]
